FAERS Safety Report 9077950 (Version 1)
Quarter: 2013Q1

REPORT INFORMATION
  Report Type: Report from Study
  Country: US (occurrence: US)
  Receive Date: 20130130
  Receipt Date: 20130130
  Transmission Date: 20140127
  Serious: No
  Sender: FDA-Public Use
  Company Number: US-ABBOTT-12P-163-0956869-00

PATIENT
  Age: 20 Year
  Sex: Male

DRUGS (2)
  1. HUMIRA 40 MG/0.8 ML PEN [Suspect]
     Indication: CROHN^S DISEASE
     Route: 058
     Dates: start: 20120206
  2. PENTASA [Concomitant]
     Indication: CROHN^S DISEASE

REACTIONS (3)
  - Drug dose omission [Unknown]
  - Oropharyngeal pain [Recovering/Resolving]
  - Pharyngitis streptococcal [Recovering/Resolving]
